FAERS Safety Report 5071766-5 (Version None)
Quarter: 2006Q3

REPORT INFORMATION
  Report Type: 
  Country: None (occurrence: None)
  Receive Date: 20060801
  Receipt Date: 20060719
  Transmission Date: 20061208
  Serious: Yes (Death)
  Sender: FDA-Public Use
  Company Number: GR200607000342

PATIENT
  Age: 78 Year
  Sex: Male
  Weight: 93 kg

DRUGS (2)
  1. CIALIS [Suspect]
     Indication: SEXUAL DYSFUNCTION
  2. ANTIHYPERTENSIVES [Concomitant]

REACTIONS (1)
  - CARDIAC FAILURE [None]
